FAERS Safety Report 4318972-2 (Version None)
Quarter: 2004Q1

REPORT INFORMATION
  Report Type: 
  Country: None (occurrence: None)
  Receive Date: 20040316
  Receipt Date: 20040219
  Transmission Date: 20041129
  Serious: Yes (Life-Threatening)
  Sender: FDA-Public Use
  Company Number: 2004-BP-01525AU

PATIENT
  Age: 65 Year
  Sex: Male

DRUGS (2)
  1. MOBIC [Suspect]
     Indication: BACK PAIN
     Dosage: 7.5 MG (7.5 MG, 1 DAILY) PO
     Route: 048
     Dates: start: 20040114, end: 20040207
  2. LAMISIL (NR) [Concomitant]

REACTIONS (1)
  - DUODENAL ULCER PERFORATION [None]
